FAERS Safety Report 20652319 (Version 1)
Quarter: 2022Q1

REPORT INFORMATION
  Report Type: Spontaneous
  Country: US (occurrence: US)
  Receive Date: 20220330
  Receipt Date: 20220330
  Transmission Date: 20220423
  Serious: No
  Sender: FDA-Public Use
  Company Number: US-AUROBINDO-AUR-APL-2021-051640

PATIENT
  Age: 59 Year
  Sex: Male

DRUGS (1)
  1. SERTRALINE HYDROCHLORIDE [Suspect]
     Active Substance: SERTRALINE HYDROCHLORIDE
     Indication: Premature ejaculation
     Dosage: 50 MILLIGRAM, QD. ONCE A DAY
     Route: 048
     Dates: start: 20211212

REACTIONS (2)
  - Nausea [Unknown]
  - Product use in unapproved indication [Unknown]
